FAERS Safety Report 21741649 (Version 2)
Quarter: 2022Q4

REPORT INFORMATION
  Report Type: Report from Study
  Country: MX (occurrence: MX)
  Receive Date: 20221216
  Receipt Date: 20221223
  Transmission Date: 20230113
  Serious: Yes (Hospitalization)
  Sender: FDA-Public Use
  Company Number: MX-GSK-MX2022185838

PATIENT

DRUGS (12)
  1. BELANTAMAB MAFODOTIN [Suspect]
     Active Substance: BELANTAMAB MAFODOTIN
     Indication: Plasma cell myeloma refractory
     Dosage: 40.45 MG, CYC (0.50 MG/KG) Q4W
     Route: 042
     Dates: start: 20220915, end: 20220915
  2. BELANTAMAB MAFODOTIN [Suspect]
     Active Substance: BELANTAMAB MAFODOTIN
     Dosage: 39.5 MG, CYC
     Route: 042
     Dates: start: 20221013, end: 20221013
  3. BELANTAMAB MAFODOTIN [Suspect]
     Active Substance: BELANTAMAB MAFODOTIN
     Dosage: 38.5 MG, CYC
     Route: 042
     Dates: start: 20221110
  4. NIROGACESTAT [Suspect]
     Active Substance: NIROGACESTAT
     Indication: Plasma cell myeloma refractory
     Dosage: 100 MG, BID
     Route: 048
     Dates: start: 20220913, end: 20220914
  5. NIROGACESTAT [Suspect]
     Active Substance: NIROGACESTAT
     Dosage: 100 MG, BID (1 TABLET)
     Route: 048
     Dates: start: 20220915, end: 20221012
  6. NIROGACESTAT [Suspect]
     Active Substance: NIROGACESTAT
     Dosage: 100 MG, BID (1 TABLET)
     Route: 048
     Dates: start: 20221110
  7. POMALIDOMIDE [Suspect]
     Active Substance: POMALIDOMIDE
     Indication: Plasma cell myeloma refractory
     Dosage: 4 MG, QD
     Route: 048
     Dates: start: 20220915, end: 20221005
  8. POMALIDOMIDE [Suspect]
     Active Substance: POMALIDOMIDE
     Dosage: 4 MG, QD
     Route: 048
     Dates: start: 20221013, end: 20221020
  9. POMALIDOMIDE [Suspect]
     Active Substance: POMALIDOMIDE
     Dosage: 4 MG, QD
     Route: 048
     Dates: start: 20221110
  10. DEXAMETHASONE [Suspect]
     Active Substance: DEXAMETHASONE
     Indication: Plasma cell myeloma refractory
     Dosage: 40 MG, QD
     Route: 048
     Dates: start: 20220915, end: 20221006
  11. DEXAMETHASONE [Suspect]
     Active Substance: DEXAMETHASONE
     Dosage: 40 MG, QD
     Route: 048
     Dates: start: 20221013
  12. DEXAMETHASONE [Suspect]
     Active Substance: DEXAMETHASONE
     Dosage: 40 MG, QD
     Route: 048
     Dates: start: 20221110

REACTIONS (1)
  - Liver injury [Not Recovered/Not Resolved]

NARRATIVE: CASE EVENT DATE: 20221211
